FAERS Safety Report 9060792 (Version 3)
Quarter: 2013Q2

REPORT INFORMATION
  Report Type: Spontaneous
  Country: IL (occurrence: IL)
  Receive Date: 20130204
  Receipt Date: 20130613
  Transmission Date: 20140414
  Serious: Yes (Life-Threatening, Hospitalization, Disabling)
  Sender: FDA-Public Use
  Company Number: IL-GENZYME-POMP-1002759

PATIENT
  Age: 14 Year
  Sex: Female
  Weight: 31 kg

DRUGS (2)
  1. MYOZYME [Suspect]
     Indication: GLYCOGEN STORAGE DISEASE TYPE II
     Dosage: 40 MG/KG, QOW
     Route: 042
     Dates: start: 201304
  2. MYOZYME [Suspect]
     Dosage: 20 MG/KG, Q2W
     Route: 042
     Dates: start: 2006

REACTIONS (3)
  - Respiratory failure [Not Recovered/Not Resolved]
  - Myopathy [Not Recovered/Not Resolved]
  - Disease progression [Unknown]
